FAERS Safety Report 17093674 (Version 1)
Quarter: 2019Q4

REPORT INFORMATION
  Report Type: Report from Study
  Country: DE (occurrence: DE)
  Receive Date: 20191129
  Receipt Date: 20191129
  Transmission Date: 20200122
  Serious: Yes (Hospitalization, Other)
  Sender: FDA-Public Use
  Company Number: DE-BAXTER-2019BAX024401

PATIENT
  Age: 91 Year
  Sex: Female
  Weight: 48 kg

DRUGS (25)
  1. VINCRISTINE [Suspect]
     Active Substance: VINCRISTINE
     Route: 041
     Dates: start: 20180517, end: 20180517
  2. PREDNISONE. [Suspect]
     Active Substance: PREDNISONE
     Indication: DIFFUSE LARGE B-CELL LYMPHOMA
     Route: 048
     Dates: start: 20180404, end: 20180408
  3. RITUXIMAB. [Suspect]
     Active Substance: RITUXIMAB
     Route: 041
     Dates: start: 20180425, end: 20180425
  4. CAPTOPRIL HCT [Concomitant]
     Indication: HYPERTENSION
     Route: 048
  5. RITUXIMAB. [Suspect]
     Active Substance: RITUXIMAB
     Route: 042
  6. ENDOXAN 1G [Suspect]
     Active Substance: CYCLOPHOSPHAMIDE
     Dosage: (INFUSION TIME:11:30-12:30)
     Route: 041
     Dates: start: 20180405, end: 20180405
  7. PREDNISONE. [Suspect]
     Active Substance: PREDNISONE
     Route: 048
     Dates: start: 20180517, end: 20180521
  8. RITUXIMAB. [Suspect]
     Active Substance: RITUXIMAB
     Dosage: (INFUSION RATE 100 (ML/MIN) FROM 19:40-22:10
     Route: 041
     Dates: start: 20180314, end: 20180314
  9. DOXIL [Suspect]
     Active Substance: DOXORUBICIN HYDROCHLORIDE
     Route: 041
     Dates: start: 20180426, end: 20180426
  10. DOXIL [Suspect]
     Active Substance: DOXORUBICIN HYDROCHLORIDE
     Route: 041
     Dates: start: 20180517, end: 20180517
  11. DOXIL [Suspect]
     Active Substance: DOXORUBICIN HYDROCHLORIDE
     Indication: DIFFUSE LARGE B-CELL LYMPHOMA
     Dosage: UNKNOWN
     Route: 041
     Dates: start: 20180315, end: 20180315
  12. ENDOXAN 1G [Suspect]
     Active Substance: CYCLOPHOSPHAMIDE
     Route: 041
     Dates: start: 20180315, end: 20180315
  13. VINCRISTINE [Suspect]
     Active Substance: VINCRISTINE
     Indication: DIFFUSE LARGE B-CELL LYMPHOMA
     Route: 041
     Dates: start: 20180426, end: 20180426
  14. PREDNISONE. [Suspect]
     Active Substance: PREDNISONE
     Route: 048
     Dates: start: 20180315, end: 20180319
  15. RITUXIMAB. [Suspect]
     Active Substance: RITUXIMAB
     Route: 041
     Dates: start: 20180517, end: 20180517
  16. PREDNISONE. [Suspect]
     Active Substance: PREDNISONE
     Route: 048
     Dates: start: 20180426, end: 20181029
  17. RITUXIMAB. [Suspect]
     Active Substance: RITUXIMAB
     Indication: DIFFUSE LARGE B-CELL LYMPHOMA
     Dosage: (INFUSION TIME:15:45-21:15)
     Route: 041
     Dates: start: 20180404, end: 20180404
  18. VIGANTOLETTEN [Concomitant]
     Active Substance: CHOLECALCIFEROL
     Indication: PROPHYLAXIS
     Route: 048
     Dates: start: 20180314
  19. ENDOXAN 1G [Suspect]
     Active Substance: CYCLOPHOSPHAMIDE
     Route: 041
     Dates: start: 20180426, end: 20180426
  20. PEGFILGRASTIM [Concomitant]
     Active Substance: PEGFILGRASTIM
     Indication: PROPHYLAXIS
     Route: 058
     Dates: start: 20180427
  21. DOXIL [Suspect]
     Active Substance: DOXORUBICIN HYDROCHLORIDE
     Dosage: (INFUSION TIME 9:30 -10:30)
     Route: 041
     Dates: start: 20180405, end: 20180405
  22. ENDOXAN 1G [Suspect]
     Active Substance: CYCLOPHOSPHAMIDE
     Indication: DIFFUSE LARGE B-CELL LYMPHOMA
     Route: 041
     Dates: start: 20180517, end: 20180517
  23. VINCRISTINE [Suspect]
     Active Substance: VINCRISTINE
     Dosage: (INFUSION RATE :9:00-9:10)
     Route: 041
     Dates: start: 20180405, end: 20180405
  24. VINCRISTINE [Suspect]
     Active Substance: VINCRISTINE
     Route: 041
     Dates: start: 20180315, end: 20180315
  25. ERYTHROZYTEN KONZENTRAT [Concomitant]
     Indication: ANAEMIA
     Route: 042
     Dates: start: 20180517, end: 20180517

REACTIONS (6)
  - Abdominal pain [Recovered/Resolved]
  - Oedema [Not Recovered/Not Resolved]
  - Subileus [Recovered/Resolved]
  - Anaemia [Recovered/Resolved]
  - Abdominal pain lower [Recovered/Resolved]
  - Injury [Recovered/Resolved]

NARRATIVE: CASE EVENT DATE: 20180321
